FAERS Safety Report 4652051-X (Version None)
Quarter: 2005Q2

REPORT INFORMATION
  Report Type: 
  Country: None (occurrence: None)
  Receive Date: 20050502
  Receipt Date: 20050502
  Transmission Date: 20051028
  Serious: Yes (Life-Threatening)
  Sender: FDA-Public Use
  Company Number: None

PATIENT
  Sex: Female
  Weight: 13.7 kg

DRUGS (1)
  1. CARBOPLATIN [Suspect]
     Indication: ASTROCYTOMA
     Dosage: 175MG/M2    QWEEK   INTRAVENOU
     Route: 042
     Dates: start: 20041223, end: 20050218

REACTIONS (3)
  - ANAEMIA HAEMOLYTIC AUTOIMMUNE [None]
  - CONVULSION [None]
  - DYSPNOEA [None]
